FAERS Safety Report 8156300-5 (Version None)
Quarter: 2012Q1

REPORT INFORMATION
  Report Type: 
  Country: None (occurrence: None)
  Receive Date: 20120103
  Receipt Date: 20111005
  Transmission Date: 20120608
  Serious: No
  Sender: FDA-Public Use
  Company Number: AE-2011-002074

PATIENT
  Age: 55 Year
  Sex: Female
  Weight: 62.5964 kg

DRUGS (8)
  1. INCIVEK [Suspect]
     Dosage: 2250 MG (750 MG, 1 IN 8 HR), ORAL
     Route: 048
     Dates: start: 20110930
  2. PEGINTERFERON (PEGINTERFERON ALFA-2A) [Concomitant]
  3. SENNA PLUS (SENOKOT-S) [Concomitant]
  4. MULTIVITAMIN [Concomitant]
  5. RIBAVIRIN [Concomitant]
  6. ACETAMINOPHEN [Concomitant]
  7. PRILOSEC [Concomitant]
  8. SYNTHROID [Concomitant]

REACTIONS (5)
  - INSOMNIA [None]
  - HEADACHE [None]
  - NAUSEA [None]
  - ASTHENIA [None]
  - VOMITING [None]
